FAERS Safety Report 6603074-2 (Version None)
Quarter: 2010Q1

REPORT INFORMATION
  Report Type: 
  Country: None (occurrence: None)
  Receive Date: 20100226
  Receipt Date: 20100219
  Transmission Date: 20100710
  Serious: Yes (Other)
  Sender: FDA-Public Use
  Company Number: PHHY2009BR43414

PATIENT
  Sex: Female

DRUGS (1)
  1. GALVUS MET [Suspect]

REACTIONS (7)
  - DECREASED APPETITE [None]
  - DYSGEUSIA [None]
  - EYE DISORDER [None]
  - GAIT DISTURBANCE [None]
  - LIMB OPERATION [None]
  - LOWER LIMB FRACTURE [None]
  - NAUSEA [None]
